FAERS Safety Report 14254925 (Version 5)
Quarter: 2018Q1

REPORT INFORMATION
  Report Type: Spontaneous
  Country: DE (occurrence: DE)
  Receive Date: 20171206
  Receipt Date: 20180328
  Transmission Date: 20180508
  Serious: Yes (Other)
  Sender: FDA-Public Use
  Company Number: DE-ASTELLAS-2017US051168

PATIENT
  Sex: Male
  Weight: 63 kg

DRUGS (11)
  1. PROGRAF [Suspect]
     Active Substance: TACROLIMUS\TACROLIMUS ANHYDROUS
     Dosage: UNK UNK, TWICE DAILY (7MG IN MORNING, 9MG IN EVENING)
     Route: 048
     Dates: start: 20171219
  2. PROGRAF [Suspect]
     Active Substance: TACROLIMUS\TACROLIMUS ANHYDROUS
     Dosage: 6 MG, TWICE DAILY (MORNING AND EVENING)
     Route: 048
     Dates: start: 20171216
  3. DILTIAZEM. [Concomitant]
     Active Substance: DILTIAZEM
     Indication: PRODUCT USED FOR UNKNOWN INDICATION
     Route: 048
     Dates: start: 20171218
  4. PROGRAF [Suspect]
     Active Substance: TACROLIMUS\TACROLIMUS ANHYDROUS
     Indication: RENAL TRANSPLANT
     Dosage: 5 MG, TWICE DAILY (5 MG BEFORE SURGERY AND 5 MG AFTER SURGERY)
     Route: 048
     Dates: start: 20171212
  5. PROGRAF [Suspect]
     Active Substance: TACROLIMUS\TACROLIMUS ANHYDROUS
     Dosage: UNK UNK, TWICE DAILY (7MG IN MORNING, 8MG IN EVENING)
     Route: 048
     Dates: start: 20171218
  6. PROGRAF [Suspect]
     Active Substance: TACROLIMUS\TACROLIMUS ANHYDROUS
     Dosage: 5 MG, TWICE DAILY (MORNING AND EVENING)
     Route: 048
     Dates: start: 20171213
  7. PROGRAF [Suspect]
     Active Substance: TACROLIMUS\TACROLIMUS ANHYDROUS
     Dosage: UNK UNK, TWICE DAILY (5 MG IN THE MORNING, 6MG IN EVENING)
     Route: 048
     Dates: start: 20171214
  8. PROGRAF [Suspect]
     Active Substance: TACROLIMUS\TACROLIMUS ANHYDROUS
     Dosage: 6 MG, TWICE DAILY (MORNING AND EVENING)
     Route: 048
     Dates: start: 20171215
  9. HEPARIN [Concomitant]
     Active Substance: HEPARIN SODIUM
     Indication: PRODUCT USED FOR UNKNOWN INDICATION
     Dosage: UNK UNK, UNKNOWN FREQ.
     Route: 065
  10. PROGRAF [Suspect]
     Active Substance: TACROLIMUS\TACROLIMUS ANHYDROUS
     Dosage: UNK UNK, TWICE DAILY (6MG IN MORNING, 8MG IN EVENING)
     Route: 048
     Dates: start: 20171217
  11. PROGRAF [Suspect]
     Active Substance: TACROLIMUS\TACROLIMUS ANHYDROUS
     Route: 048
     Dates: start: 20171220

REACTIONS (4)
  - Product quality issue [Unknown]
  - Transplant rejection [Unknown]
  - Drug ineffective [Unknown]
  - Drug level below therapeutic [Not Recovered/Not Resolved]

NARRATIVE: CASE EVENT DATE: 20171220
